FAERS Safety Report 9225696 (Version 2)
Quarter: 2013Q3

REPORT INFORMATION
  Report Type: Report from Study
  Country: JP (occurrence: JP)
  Receive Date: 20130411
  Receipt Date: 20130718
  Transmission Date: 20140515
  Serious: Yes (Hospitalization)
  Sender: FDA-Public Use
  Company Number: JP-ELI_LILLY_AND_COMPANY-JP201302003385

PATIENT
  Age: 77 Year
  Sex: Female

DRUGS (2)
  1. TERIPARATIDE [Suspect]
     Dosage: UNK
     Route: 058
     Dates: end: 20130206
  2. TERIPARATIDE [Suspect]
     Dosage: UNK
     Route: 058
     Dates: start: 2013

REACTIONS (4)
  - Colon cancer [Not Recovered/Not Resolved]
  - Injection site discomfort [Unknown]
  - Weight decreased [Not Recovered/Not Resolved]
  - Anaemia [Unknown]
